FAERS Safety Report 9966413 (Version 2)
Quarter: 2014Q1

REPORT INFORMATION
  Report Type: Report from Study
  Country: US (occurrence: US)
  Receive Date: 20140305
  Receipt Date: 20140305
  Transmission Date: 20141002
  Serious: Yes (Hospitalization)
  Sender: FDA-Public Use
  Company Number: US-ABBVIE-13P-163-1109609-00

PATIENT
  Age: 22 Year
  Sex: Male

DRUGS (11)
  1. HUMIRA [Suspect]
     Indication: COLITIS ULCERATIVE
     Dates: start: 20130428, end: 20130604
  2. HUMIRA [Suspect]
     Dates: start: 20130604, end: 20130620
  3. 6-MP [Concomitant]
     Indication: PRODUCT USED FOR UNKNOWN INDICATION
  4. FOLIC ACID [Concomitant]
     Indication: PRODUCT USED FOR UNKNOWN INDICATION
  5. ADVAIR [Concomitant]
     Indication: ASTHMA
  6. EPINEPHRINE MINIJET [Concomitant]
     Indication: FOOD ALLERGY
     Dosage: NEVER HAD TO USE IT
  7. PANTOPRAZOLE [Concomitant]
     Indication: PRODUCT USED FOR UNKNOWN INDICATION
  8. ASACOL HD [Concomitant]
     Indication: PRODUCT USED FOR UNKNOWN INDICATION
     Dosage: 800 MG, 3 PILLS DAILY
  9. FLOVENT HFA [Concomitant]
     Indication: ASTHMA
     Dosage: 1 PUFF TWICE DAILY
  10. IMODIUM [Concomitant]
     Indication: DIARRHOEA
  11. PERCOCET [Concomitant]
     Indication: ABDOMINAL PAIN
     Dosage: 5/325 MG

REACTIONS (4)
  - Colitis ulcerative [Not Recovered/Not Resolved]
  - Drug ineffective [Unknown]
  - Dehydration [Unknown]
  - Anaemia [Unknown]
